FAERS Safety Report 5948669-4 (Version None)
Quarter: 2008Q4

REPORT INFORMATION
  Report Type: 
  Country: None (occurrence: None)
  Receive Date: 20081111
  Receipt Date: 20081031
  Transmission Date: 20090506
  Serious: Yes (Hospitalization)
  Sender: FDA-Public Use
  Company Number: FR-BAXTER-2008BH010647

PATIENT
  Age: 20 Year
  Sex: Male

DRUGS (15)
  1. HOLOXAN BAXTER [Suspect]
     Indication: RHABDOMYOSARCOMA
     Dosage: DOSE UNIT:UNKNOWN
     Route: 065
     Dates: start: 20080311, end: 20080311
  2. HOLOXAN BAXTER [Suspect]
     Dosage: DOSE UNIT:UNKNOWN
     Route: 042
     Dates: start: 20080513, end: 20080513
  3. HOLOXAN BAXTER [Suspect]
     Dosage: DOSE UNIT:UNKNOWN
     Route: 042
     Dates: start: 20080603, end: 20080603
  4. HOLOXAN BAXTER [Suspect]
     Route: 042
     Dates: start: 20080624, end: 20080625
  5. HOLOXAN BAXTER [Suspect]
     Dosage: DOSE UNIT:UNKNOWN
     Route: 065
     Dates: start: 20080401, end: 20080401
  6. HOLOXAN BAXTER [Suspect]
     Dosage: DOSE UNIT:UNKNOWN
     Route: 042
     Dates: start: 20080422, end: 20080422
  7. ONCOVIN [Suspect]
     Indication: RHABDOMYOSARCOMA
     Dosage: DOSE UNIT:UNKNOWN
     Route: 065
     Dates: start: 20080311, end: 20080311
  8. ONCOVIN [Suspect]
     Dosage: DOSE UNIT:UNKNOWN
     Route: 065
     Dates: start: 20080401, end: 20080401
  9. ONCOVIN [Suspect]
     Dosage: DOSE UNIT:UNKNOWN
     Route: 065
     Dates: start: 20080513, end: 20080513
  10. ONCOVIN [Suspect]
     Dosage: DOSE UNIT:UNKNOWN
     Route: 065
     Dates: start: 20080603, end: 20080603
  11. ONCOVIN [Suspect]
     Route: 065
     Dates: start: 20080624, end: 20080624
  12. ONCOVIN [Suspect]
     Dosage: DOSE UNIT:UNKNOWN
     Route: 042
     Dates: start: 20080422, end: 20080422
  13. DACTINOMYCIN [Concomitant]
  14. DOXORUBICIN HCL [Concomitant]
  15. UROMITEXAN [Concomitant]
     Dates: start: 20080624, end: 20080625

REACTIONS (1)
  - INTRACARDIAC THROMBUS [None]
